FAERS Safety Report 7542548-7 (Version None)
Quarter: 2011Q2

REPORT INFORMATION
  Report Type: 
  Country: None (occurrence: None)
  Receive Date: 20110613
  Receipt Date: 20110606
  Transmission Date: 20111010
  Serious: Yes (Hospitalization)
  Sender: FDA-Public Use
  Company Number: US-B.I. PHARMACEUTICALS,INC./RIDGEFIELD-2011-BP-14801BP

PATIENT
  Age: 79 Year
  Sex: Female

DRUGS (4)
  1. MECLIZINE [Concomitant]
     Indication: VERTIGO
  2. WATER PILL [Concomitant]
  3. ATENOLOL [Concomitant]
  4. PRADAXA [Suspect]
     Indication: ATRIAL FIBRILLATION
     Dosage: 300 MG
     Route: 048
     Dates: start: 20110528, end: 20110530

REACTIONS (4)
  - OXYGEN SATURATION DECREASED [None]
  - LOWER GASTROINTESTINAL HAEMORRHAGE [None]
  - HYPOTENSION [None]
  - INTERNATIONAL NORMALISED RATIO INCREASED [None]
